FAERS Safety Report 21896764 (Version 1)
Quarter: 2023Q1

REPORT INFORMATION
  Report Type: Spontaneous
  Country: US (occurrence: None)
  Receive Date: 20230120
  Receipt Date: 20230120
  Transmission Date: 20230418
  Serious: No
  Sender: FDA-Public Use
  Company Number: None

PATIENT
  Sex: Female

DRUGS (1)
  1. OTEZLA [Suspect]
     Active Substance: APREMILAST
     Indication: Psoriatic arthropathy
     Dosage: FREQUENCY : TWICE A DAY;?
     Route: 048
     Dates: start: 20221224

REACTIONS (8)
  - Swelling face [None]
  - Swelling [None]
  - Nasal disorder [None]
  - Eye swelling [None]
  - Burning sensation [None]
  - Skin burning sensation [None]
  - Blister [None]
  - Skin exfoliation [None]
